FAERS Safety Report 18596997 (Version 1)
Quarter: 2020Q4

REPORT INFORMATION
  Report Type: Spontaneous
  Country: DE (occurrence: DE)
  Receive Date: 20201209
  Receipt Date: 20201209
  Transmission Date: 20210114
  Serious: Yes (Death)
  Sender: FDA-Public Use
  Company Number: DE-MYLANLABS-2020M1099924

PATIENT

DRUGS (15)
  1. PREDNISOLONE. [Suspect]
     Active Substance: PREDNISOLONE
     Dosage: 3 MG ICV, EVERY 2 WEEKS (CYCLE 5,DAY 2-4) WITH MTX
  2. CYTARABINE. [Suspect]
     Active Substance: CYTARABINE
     Dosage: 10 MG, EVERY 3 WEEKS (CYCLE 4 AND 6, DAY 6)
  3. CYTARABINE. [Suspect]
     Active Substance: CYTARABINE
     Dosage: 3000 MG/M2 EVERY 3 WEEKS (CYCLE 4 AND 6, DAY 1-2)
     Route: 042
  4. IFOSFAMIDE. [Suspect]
     Active Substance: IFOSFAMIDE
     Dosage: 800 MG/M2, EVERY 2 WEEKS (CYCLE 5, DAY 2-4)
     Route: 042
  5. G-CSF [Suspect]
     Active Substance: GRANULOCYTE COLONY-STIMULATING FACTOR NOS
     Indication: PROPHYLAXIS
     Dosage: AT EACH CYCLE
  6. RITUXIMAB. [Suspect]
     Active Substance: RITUXIMAB
     Indication: CENTRAL NERVOUS SYSTEM LYMPHOMA
     Dosage: 375 MG/M2, EVERY 2 WEEKS (CYCLE 1-3, DAY 0)
     Route: 042
  7. METHOTREXATE. [Suspect]
     Active Substance: METHOTREXATE
     Dosage: 4000 MG/M2, EVERY 2 WEEKS (CYCLE 5, DAY 1)
     Route: 042
  8. CYTARABINE. [Suspect]
     Active Substance: CYTARABINE
     Indication: CENTRAL NERVOUS SYSTEM LYMPHOMA
     Dosage: 10 MG, EVERY 2 WEEKS (CYCLE 5, DAY 5)
  9. ACICLOVIR [Suspect]
     Active Substance: ACYCLOVIR
     Indication: PRODUCT USED FOR UNKNOWN INDICATION
     Dosage: AT EACH CYCLE
  10. SULPHAMETHOXAZOLE/TRIMETHOPRIM [Suspect]
     Active Substance: SULFAMETHOXAZOLE\TRIMETHOPRIM
     Indication: PRODUCT USED FOR UNKNOWN INDICATION
     Dosage: AT EACH CYCLE
  11. PREDNISOLONE. [Suspect]
     Active Substance: PREDNISOLONE
     Indication: CENTRAL NERVOUS SYSTEM LYMPHOMA
     Dosage: 3 MG ICV, EVERY 3 WEEKS (CYCLE 4 AND 6,DAY 3-5) WITH MTX
  12. IFOSFAMIDE. [Suspect]
     Active Substance: IFOSFAMIDE
     Indication: CENTRAL NERVOUS SYSTEM LYMPHOMA
     Dosage: 800 MG/M2, EVERY 2 WEEKS (CYCLE 1-3, DAY 2-4)
     Route: 042
  13. METHOTREXATE. [Suspect]
     Active Substance: METHOTREXATE
     Indication: CENTRAL NERVOUS SYSTEM LYMPHOMA
     Dosage: 4000 MG/M2, EVERY 2 WEEKS (CYCLE 1-3, DAY 1)
     Route: 042
  14. METHOTREXATE. [Suspect]
     Active Substance: METHOTREXATE
     Dosage: 2.5 MILLIGRAM, EVERY 3 WEEKS (CYCLE 4 AND 6, DAY 3-5) (WITH PREDNISOLONE)
  15. METHOTREXATE. [Suspect]
     Active Substance: METHOTREXATE
     Dosage: 2.5 MILLIGRAM, EVERY 2 WEEKS (CYCLE 5, DAY 2-4) (WITH PREDNISOLONE)

REACTIONS (3)
  - Hepatic failure [Fatal]
  - Contraindicated product administered [Fatal]
  - Hepatitis B reactivation [Fatal]
